FAERS Safety Report 19262953 (Version 1)
Quarter: 2021Q2

REPORT INFORMATION
  Report Type: Spontaneous
  Country: US (occurrence: US)
  Receive Date: 20210517
  Receipt Date: 20210517
  Transmission Date: 20210717
  Serious: Yes (Hospitalization, Other)
  Sender: FDA-Public Use
  Company Number: US-PURACAP-US-2021EPCLIT00523

PATIENT
  Age: 58 Year
  Sex: Female

DRUGS (8)
  1. PHYTONADIONE. [Interacting]
     Active Substance: PHYTONADIONE
     Indication: SUPPORTIVE CARE
     Route: 042
  2. ERGOCALCIFEROL. [Suspect]
     Active Substance: ERGOCALCIFEROL
     Indication: PSORIASIS
     Route: 048
  3. CEPHALEXIN [CEFALEXIN] [Interacting]
     Active Substance: CEPHALEXIN
     Indication: SUPPORTIVE CARE
     Route: 065
  4. PAMIDRONATE [Interacting]
     Active Substance: PAMIDRONATE DISODIUM
     Indication: SUPPORTIVE CARE
     Route: 042
  5. ENOXAPARIN [Interacting]
     Active Substance: ENOXAPARIN
     Indication: SUPPORTIVE CARE
     Route: 065
  6. CALCIPOTRIENE. [Concomitant]
     Active Substance: CALCIPOTRIENE
     Indication: PSORIASIS
     Route: 061
  7. WARFARIN [Concomitant]
     Active Substance: WARFARIN
     Indication: DEEP VEIN THROMBOSIS
     Route: 065
  8. SODIUM THIOSULFATE [Interacting]
     Active Substance: SODIUM THIOSULFATE
     Indication: SUPPORTIVE CARE
     Route: 026

REACTIONS (1)
  - Calciphylaxis [Recovered/Resolved]
